FAERS Safety Report 6519115-7 (Version None)
Quarter: 2009Q4

REPORT INFORMATION
  Report Type: 
  Country: None (occurrence: None)
  Receive Date: 20091228
  Receipt Date: 20091215
  Transmission Date: 20100525
  Serious: Yes (Other)
  Sender: FDA-Public Use
  Company Number: US-BAYER-200917604BCC

PATIENT
  Age: 5 Year
  Sex: Female
  Weight: 30 kg

DRUGS (2)
  1. RID MOUSSE [Suspect]
     Indication: LICE INFESTATION
     Route: 061
     Dates: start: 20090201
  2. RID MOUSSE [Suspect]
     Route: 061

REACTIONS (6)
  - BURNING SENSATION [None]
  - LICE INFESTATION [None]
  - MASS [None]
  - PETECHIAE [None]
  - PRURITUS [None]
  - SKIN ULCER [None]
